FAERS Safety Report 8598351-2 (Version None)
Quarter: 2012Q3

REPORT INFORMATION
  Report Type: 
  Country: None (occurrence: None)
  Receive Date: 20120816
  Receipt Date: 20120813
  Transmission Date: 20120928
  Serious: Yes (Other)
  Sender: FDA-Public Use
  Company Number: FR-ELI_LILLY_AND_COMPANY-FR201208003983

PATIENT
  Age: 48 Year
  Sex: Male

DRUGS (1)
  1. CIALIS [Suspect]
     Dosage: 20 MG, UNK

REACTIONS (4)
  - HEADACHE [None]
  - DRUG INEFFECTIVE [None]
  - DIZZINESS [None]
  - VISION BLURRED [None]
